FAERS Safety Report 21526326 (Version 3)
Quarter: 2023Q1

REPORT INFORMATION
  Report Type: Report from Study
  Country: DE (occurrence: DE)
  Receive Date: 20221031
  Receipt Date: 20230125
  Transmission Date: 20230417
  Serious: Yes (Other)
  Sender: FDA-Public Use
  Company Number: DE-CELLTRION INC.-2022DE017731

PATIENT

DRUGS (5)
  1. TRASTUZUMAB [Suspect]
     Active Substance: TRASTUZUMAB
     Indication: Breast cancer
     Dosage: LAST DOSE ( 600 MG) PRIOR TO EVENT WAS ON 02.06.2022. LAST DOSE (600 MG) PRIOR TO EVENT WAS ON 08/SE
     Route: 042
     Dates: start: 20220602, end: 20221209
  2. PACLITAXEL [Suspect]
     Active Substance: PACLITAXEL
     Indication: Breast cancer
     Dosage: LAST DOSE ( 160 MG) PRIOR TO AE WAS ON 02/JUN2022. LAST DOSE (160 MG) ADMINISTER PRIOR TO AE WAS ON
     Dates: start: 20220602
  3. PERTUZUMAB [Suspect]
     Active Substance: PERTUZUMAB
     Indication: Breast cancer
     Dosage: LAST DOSE PRIOR TO AE WAS ON 02/JUN/2022, DOSE WAS 1200MG
     Dates: start: 20220602, end: 20220602
  4. PERTUZUMAB [Suspect]
     Active Substance: PERTUZUMAB
     Dosage: LAST DOSE ( 600 MG) PRIOR TO AE WAS ON 08/SEP/2022. ON 03/NOV/2022, SHE RECEIVED THE LAST APPLICATIO
     Dates: start: 20220707, end: 20221209
  5. CARBOPLATIN [Suspect]
     Active Substance: CARBOPLATIN
     Indication: Breast cancer
     Dosage: LAST DOSE ( 770 MG) PRIOR TO AE WAS ON 02/JUN/2022. LAST DOSE (680 MG) ADMINISTERED PRIOR TO AE WAS
     Dates: start: 20220602

REACTIONS (3)
  - Leukopenia [Recovering/Resolving]
  - Anaemia [Recovering/Resolving]
  - General physical health deterioration [Recovering/Resolving]

NARRATIVE: CASE EVENT DATE: 20220607
